FAERS Safety Report 4975696-6 (Version None)
Quarter: 2006Q1

REPORT INFORMATION
  Report Type: 
  Country: None (occurrence: None)
  Receive Date: 20060222
  Receipt Date: 20051209
  Transmission Date: 20060701
  Serious: Yes (Other)
  Sender: FDA-Public Use
  Company Number: HQWYE945312DEC05

PATIENT
  Age: 11 Year
  Sex: Female

DRUGS (1)
  1. PROTONIX [Suspect]
     Indication: DYSPEPSIA
     Dosage: 40 MG 1X PER 1 TOT, ORAL
     Route: 048
     Dates: start: 20051203, end: 20051203

REACTIONS (3)
  - PRURITUS [None]
  - RASH [None]
  - URTICARIA [None]
